FAERS Safety Report 5937867-1 (Version None)
Quarter: 2008Q4

REPORT INFORMATION
  Report Type: 
  Country: None (occurrence: None)
  Receive Date: 20081031
  Receipt Date: 20081023
  Transmission Date: 20090506
  Serious: Yes (Hospitalization)
  Sender: FDA-Public Use
  Company Number: US-GILEAD-2008-0018549

PATIENT
  Sex: Female
  Weight: 102.6 kg

DRUGS (9)
  1. TRUVADA [Suspect]
     Route: 048
     Dates: start: 20071114
  2. PREZISTA [Suspect]
     Route: 048
     Dates: start: 20071114
  3. RITONAVIR [Suspect]
     Route: 048
     Dates: start: 20071114
  4. BACTRIM [Concomitant]
     Indication: ANTIFUNGAL PROPHYLAXIS
     Route: 048
     Dates: start: 20080918, end: 20080925
  5. AMITRIPTYLINE HCL [Concomitant]
     Indication: MIGRAINE
     Route: 048
     Dates: start: 20080918
  6. PROTONIX [Concomitant]
     Route: 048
  7. ZITHROMAX [Concomitant]
     Indication: ANTIFUNGAL PROPHYLAXIS
     Route: 048
  8. ZOLOFT [Concomitant]
     Indication: DEPRESSION
     Route: 048
  9. TRAZODONE HCL [Concomitant]
     Indication: DEPRESSION
     Route: 048

REACTIONS (1)
  - FEBRILE NEUTROPENIA [None]
